FAERS Safety Report 4334017-2 (Version None)
Quarter: 2004Q2

REPORT INFORMATION
  Report Type: 
  Country: None (occurrence: None)
  Receive Date: 20040402
  Receipt Date: 20040319
  Transmission Date: 20050107
  Serious: Yes (Death)
  Sender: FDA-Public Use
  Company Number: 2004-DE-01404GD

PATIENT
  Age: 35 Year
  Sex: Female

DRUGS (2)
  1. CYCLOPHOSPHAMIDE [Suspect]
     Indication: ANGIOSARCOMA
     Dosage: PO
     Route: 048
  2. ETOPOSIDE [Suspect]
     Indication: ANGIOSARCOMA
     Dosage: PO
     Route: 048

REACTIONS (1)
  - GENERAL PHYSICAL HEALTH DETERIORATION [None]
